FAERS Safety Report 4744066-8 (Version None)
Quarter: 2005Q3

REPORT INFORMATION
  Report Type: 
  Country: None (occurrence: None)
  Receive Date: 20050809
  Receipt Date: 20050802
  Transmission Date: 20060218
  Serious: Yes (Disabling)
  Sender: FDA-Public Use
  Company Number: HQWYE678103AUG05

PATIENT
  Age: 24 Year
  Sex: Female
  Weight: 59.02 kg

DRUGS (4)
  1. EFFEXOR XR [Suspect]
     Indication: ANXIETY
     Dosage: SEE IMAGE
     Route: 048
     Dates: start: 20050401, end: 20050716
  2. EFFEXOR XR [Suspect]
     Indication: DEPRESSION
     Dosage: SEE IMAGE
     Route: 048
     Dates: start: 20050401, end: 20050716
  3. EFFEXOR XR [Suspect]
     Indication: ANXIETY
     Dosage: SEE IMAGE
     Route: 048
     Dates: start: 20050717, end: 20050726
  4. EFFEXOR XR [Suspect]
     Indication: DEPRESSION
     Dosage: SEE IMAGE
     Route: 048
     Dates: start: 20050717, end: 20050726

REACTIONS (8)
  - ABNORMAL DREAMS [None]
  - CRYING [None]
  - DISORIENTATION [None]
  - DIZZINESS [None]
  - HOT FLUSH [None]
  - MIGRAINE [None]
  - PARAESTHESIA [None]
  - VERTIGO [None]
